FAERS Safety Report 5052919-9 (Version None)
Quarter: 2006Q3

REPORT INFORMATION
  Report Type: 
  Country: None (occurrence: None)
  Receive Date: 20060712
  Receipt Date: 20060712
  Transmission Date: 20061208
  Serious: Yes (Death, Hospitalization)
  Sender: FDA-Public Use
  Company Number: None

PATIENT
  Age: 76 Year
  Sex: Male
  Weight: 83.9154 kg

DRUGS (5)
  1. PLAVIX [Suspect]
     Indication: ATRIAL FIBRILLATION
     Dosage: 1 TAB BY MOUTH /DAY
     Dates: start: 20020101, end: 20050601
  2. PLAVIX [Suspect]
     Indication: HYPERTENSION
     Dosage: 1 TAB BY MOUTH /DAY
     Dates: start: 20020101, end: 20050601
  3. PLAVIX [Suspect]
     Indication: ATRIAL FIBRILLATION
     Dosage: 1 TAB BY MOUTH /DAY
     Dates: start: 20060201, end: 20060408
  4. PLAVIX [Suspect]
     Indication: HYPERTENSION
     Dosage: 1 TAB BY MOUTH /DAY
     Dates: start: 20060201, end: 20060408
  5. COUMADIN [Concomitant]

REACTIONS (2)
  - DRUG INEFFECTIVE [None]
  - HAEMORRHAGIC STROKE [None]
